FAERS Safety Report 8493585-X (Version None)
Quarter: 2012Q3

REPORT INFORMATION
  Report Type: 
  Country: None (occurrence: None)
  Receive Date: 20120706
  Receipt Date: 20120703
  Transmission Date: 20120928
  Serious: Yes (Other)
  Sender: FDA-Public Use
  Company Number: US-PFIZER INC-2012159849

PATIENT
  Sex: Female
  Weight: 60.771 kg

DRUGS (11)
  1. SALMON OIL [Concomitant]
     Dosage: 1000 MG, 2X/DAY
  2. VITAMIN D [Concomitant]
     Dosage: UNK, 1X/DAY
  3. LORAZEPAM [Concomitant]
     Dosage: 1 MG, AS NEEDED
  4. NAPROXEN [Concomitant]
     Indication: ARTHRALGIA
     Dosage: UNK, 1X/DAY
  5. LEVOTHROID [Concomitant]
     Dosage: 50 UG, UNK
  6. ZINC [Concomitant]
     Dosage: UNK, 1X/DAY
  7. LYRICA [Suspect]
     Indication: EYE PAIN
  8. POLYETHYLENE GLYCOL [Concomitant]
     Dosage: UNK
  9. LYRICA [Suspect]
     Indication: CRANIAL NERVE INJURY
     Dosage: 25 MG, 3X/DAY
     Route: 048
     Dates: start: 20120501
  10. LYRICA [Suspect]
     Indication: MUSCLE SPASMS
     Dosage: 25 MG, 3X/DAY
     Route: 048
     Dates: start: 20120522, end: 20120523
  11. PREVACID [Concomitant]
     Dosage: 300 MG, 2X/DAY

REACTIONS (8)
  - VERTIGO [None]
  - CONFUSIONAL STATE [None]
  - FEELING ABNORMAL [None]
  - HYPOAESTHESIA [None]
  - EYE PAIN [None]
  - VISUAL IMPAIRMENT [None]
  - MUSCLE SPASMS [None]
  - CONSTIPATION [None]
